FAERS Safety Report 26081166 (Version 1)
Quarter: 2025Q4

REPORT INFORMATION
  Report Type: Spontaneous
  Country: JP (occurrence: JP)
  Receive Date: 20251124
  Receipt Date: 20251124
  Transmission Date: 20260117
  Serious: Yes (Hospitalization, Other)
  Sender: PHARMOBEDIENT CONSULTING, LLC
  Company Number: JP-Pharmobedient-000527

PATIENT
  Age: 73 Year
  Sex: Male

DRUGS (1)
  1. PACLITAXEL [Suspect]
     Active Substance: PACLITAXEL
     Indication: Epithelioid sarcoma

REACTIONS (3)
  - Diarrhoea [Unknown]
  - Pneumothorax [Unknown]
  - Tumour necrosis [Unknown]
